FAERS Safety Report 8475591-4 (Version None)
Quarter: 2012Q2

REPORT INFORMATION
  Report Type: 
  Country: None (occurrence: None)
  Receive Date: 20120628
  Receipt Date: 20120614
  Transmission Date: 20120825
  Serious: Yes (Other)
  Sender: FDA-Public Use
  Company Number: US-MYLANLABS-2012S1012247

PATIENT
  Age: 78 Year
  Sex: Female

DRUGS (8)
  1. CRESTOR [Concomitant]
     Route: 065
  2. METFORMIN HCL [Suspect]
     Indication: TYPE 2 DIABETES MELLITUS
     Route: 048
  3. FELODIPINE [Concomitant]
     Route: 065
  4. GLIPIZIDE [Concomitant]
     Indication: TYPE 2 DIABETES MELLITUS
     Route: 065
  5. PLAVIX [Concomitant]
     Route: 065
  6. PERCOCET [Concomitant]
     Route: 065
  7. ENALAPRIL MALEATE [Concomitant]
     Route: 065
  8. RESTORIL [Concomitant]
     Route: 065

REACTIONS (1)
  - HYPOMAGNESAEMIA [None]
